FAERS Safety Report 7759255-8 (Version None)
Quarter: 2011Q3

REPORT INFORMATION
  Report Type: 
  Country: None (occurrence: None)
  Receive Date: 20110915
  Receipt Date: 20110908
  Transmission Date: 20111222
  Serious: Yes (Hospitalization)
  Sender: FDA-Public Use
  Company Number: 2010SP019827

PATIENT
  Age: 42 Year
  Sex: Female
  Weight: 90.7194 kg

DRUGS (1)
  1. NUVARING [Suspect]
     Indication: CONTRACEPTION
     Dates: start: 20070801, end: 20080401

REACTIONS (8)
  - PARAKERATOSIS [None]
  - MIGRAINE [None]
  - DEEP VEIN THROMBOSIS [None]
  - DEPRESSION [None]
  - UTERINE LEIOMYOMA [None]
  - PULMONARY EMBOLISM [None]
  - STRESS URINARY INCONTINENCE [None]
  - LIBIDO DECREASED [None]
